FAERS Safety Report 4444682-7 (Version None)
Quarter: 2004Q3

REPORT INFORMATION
  Report Type: 
  Country: None (occurrence: None)
  Receive Date: 20040902
  Receipt Date: 20040817
  Transmission Date: 20050211
  Serious: Yes (Hospitalization, Other)
  Sender: FDA-Public Use
  Company Number: USA040774103

PATIENT
  Age: 51 Year
  Sex: Male
  Weight: 67 kg

DRUGS (4)
  1. ALIMTA [Suspect]
     Indication: NON-SMALL CELL LUNG CANCER METASTATIC
     Dosage: 950 MG
     Dates: start: 20040721
  2. VITAMIN B-12 [Concomitant]
  3. FOLIC ACID [Concomitant]
  4. CORTICOSTEROID NOS [Concomitant]

REACTIONS (1)
  - HEADACHE [None]
